FAERS Safety Report 5029694-7 (Version None)
Quarter: 2006Q2

REPORT INFORMATION
  Report Type: 
  Country: None (occurrence: None)
  Receive Date: 20060620
  Receipt Date: 20060410
  Transmission Date: 20061013
  Serious: Yes (Death, Hospitalization)
  Sender: FDA-Public Use
  Company Number: US-AVENTIS-200613369US

PATIENT
  Sex: Female
  Weight: 101 kg

DRUGS (6)
  1. LOVENOX [Suspect]
     Indication: MYOCARDIAL INFARCTION
     Dates: start: 20060216, end: 20060218
  2. LOVENOX [Suspect]
     Dates: start: 20060219, end: 20060219
  3. DOPAMINE [Concomitant]
     Dosage: DOSE: RENAL DOSING
     Dates: start: 20060220
  4. SODIUM NITROPRUSSIDE [Concomitant]
     Dosage: DOSE: UNK
     Dates: start: 20060212, end: 20060213
  5. NITROGLYCERIN [Concomitant]
     Dosage: DOSE: UNK
     Dates: start: 20060212, end: 20060213
  6. LABETALOL HCL [Concomitant]
     Dosage: DOSE: UNK
     Dates: start: 20060212, end: 20060213

REACTIONS (3)
  - DEATH [None]
  - RETROPERITONEAL HAEMORRHAGE [None]
  - SEPSIS [None]
